FAERS Safety Report 7611078-6 (Version None)
Quarter: 2011Q3

REPORT INFORMATION
  Report Type: 
  Country: None (occurrence: None)
  Receive Date: 20110715
  Receipt Date: 20110707
  Transmission Date: 20111222
  Serious: No
  Sender: FDA-Public Use
  Company Number: US-B.I. PHARMACEUTICALS,INC./RIDGEFIELD-2011-BP-17295BP

PATIENT
  Sex: Male

DRUGS (3)
  1. ZYRTEC [Concomitant]
     Indication: MULTIPLE ALLERGIES
     Route: 048
  2. TRICOR [Concomitant]
     Indication: HYPERLIPIDAEMIA
     Route: 048
  3. PRADAXA [Suspect]
     Indication: ATRIAL FIBRILLATION
     Dosage: 300 MG
     Route: 048
     Dates: start: 20110301

REACTIONS (2)
  - ABDOMINAL DISTENSION [None]
  - DYSPEPSIA [None]
